FAERS Safety Report 6040082-7 (Version None)
Quarter: 2009Q1

REPORT INFORMATION
  Report Type: 
  Country: None (occurrence: None)
  Receive Date: 20090116
  Receipt Date: 20080407
  Transmission Date: 20090719
  Serious: No
  Sender: FDA-Public Use
  Company Number: US-BRISTOL-MYERS SQUIBB COMPANY-14005763

PATIENT
  Age: 10 Year
  Sex: Male

DRUGS (4)
  1. ABILIFY [Suspect]
     Indication: POST-TRAUMATIC STRESS DISORDER
     Route: 048
  2. ABILIFY [Suspect]
     Indication: AFFECTIVE DISORDER
     Route: 048
  3. CLONIDINE [Concomitant]
     Dosage: .2MG QHS
  4. FOCALIN [Concomitant]
     Dosage: 15MG Q AM

REACTIONS (1)
  - DYSKINESIA [None]
